FAERS Safety Report 26090912 (Version 1)
Quarter: 2025Q4

REPORT INFORMATION
  Report Type: Spontaneous
  Country: US (occurrence: US)
  Receive Date: 20251126
  Receipt Date: 20251126
  Transmission Date: 20260119
  Serious: No
  Sender: TARO
  Company Number: US-TARO PHARMACEUTICALS USA INC.-2024TAR02677

PATIENT

DRUGS (1)
  1. CLOBETASOL PROPIONATE [Suspect]
     Active Substance: CLOBETASOL PROPIONATE
     Indication: Pruritus
     Dosage: ADEQUATE, TWICE A DAY BUT STOPPED AFTER 5 TO 6 DOSES
     Route: 061

REACTIONS (2)
  - Product dose omission issue [Unknown]
  - Product quality issue [Unknown]
